FAERS Safety Report 14490662 (Version 3)
Quarter: 2018Q2

REPORT INFORMATION
  Report Type: Spontaneous
  Country: GB (occurrence: GB)
  Receive Date: 20180206
  Receipt Date: 20180508
  Transmission Date: 20180711
  Serious: Yes (Death)
  Sender: FDA-Public Use
  Company Number: GB-009507513-1802GBR000644

PATIENT
  Age: 75 Year
  Sex: Male

DRUGS (5)
  1. DOCUSATE SODIUM. [Concomitant]
     Active Substance: DOCUSATE SODIUM
  2. DOMPERIDONE [Concomitant]
     Active Substance: DOMPERIDONE
  3. LOPERAMIDE [Concomitant]
     Active Substance: LOPERAMIDE
  4. CASSIA [Concomitant]
  5. KEYTRUDA [Suspect]
     Active Substance: PEMBROLIZUMAB
     Indication: LUNG CANCER METASTATIC
     Route: 048
     Dates: start: 20171215, end: 20171218

REACTIONS (3)
  - Acute interstitial pneumonitis [Fatal]
  - Dyspnoea [Not Recovered/Not Resolved]
  - Hypoxia [Not Recovered/Not Resolved]

NARRATIVE: CASE EVENT DATE: 201712
